FAERS Safety Report 19050897 (Version 7)
Quarter: 2021Q4

REPORT INFORMATION
  Report Type: Report from Study
  Country: US (occurrence: US)
  Receive Date: 20210324
  Receipt Date: 20211216
  Transmission Date: 20220303
  Serious: No
  Sender: FDA-Public Use
  Company Number: NVSC2021US063625

PATIENT
  Age: 67 Year
  Sex: Female

DRUGS (2)
  1. ENTRESTO [Suspect]
     Active Substance: SACUBITRIL\VALSARTAN
     Indication: Cardiac failure congestive
     Dosage: 50 MG, BID (24/26 MG)
     Route: 048
     Dates: start: 20210224
  2. ENTRESTO [Suspect]
     Active Substance: SACUBITRIL\VALSARTAN
     Dosage: 100 MG, BID (49/51 MG)
     Route: 048

REACTIONS (16)
  - Lacrimation increased [Unknown]
  - Dry eye [Unknown]
  - Palpitations [Recovering/Resolving]
  - Weight fluctuation [Not Recovered/Not Resolved]
  - Pollakiuria [Unknown]
  - Nasopharyngitis [Not Recovered/Not Resolved]
  - Hypertension [Unknown]
  - Fluid retention [Unknown]
  - Fatigue [Unknown]
  - Pain in extremity [Unknown]
  - Back pain [Unknown]
  - Tooth loss [Unknown]
  - Nasal congestion [Unknown]
  - COVID-19 [Recovering/Resolving]
  - Cough [Not Recovered/Not Resolved]
  - Hypersensitivity [Unknown]

NARRATIVE: CASE EVENT DATE: 20210224
